FAERS Safety Report 8602127-7 (Version None)
Quarter: 2012Q3

REPORT INFORMATION
  Report Type: 
  Country: None (occurrence: None)
  Receive Date: 20120817
  Receipt Date: 20120808
  Transmission Date: 20120928
  Serious: Yes (Hospitalization)
  Sender: FDA-Public Use
  Company Number: IL-NOVOPROD-349214

PATIENT
  Age: 74 Year
  Sex: Male
  Weight: 84.8 kg

DRUGS (17)
  1. VITAMIN C                          /00008001/ [Concomitant]
     Indication: PROPHYLAXIS
     Dosage: 1000 MG, UNK
     Dates: start: 20000101
  2. RAMIPRIL [Concomitant]
     Indication: HYPERTENSION
     Dosage: 1.25 MG, UNK
     Dates: start: 19950101
  3. ATENOLOL [Concomitant]
     Indication: HYPERTENSION
     Dosage: 1.25 MG, UNK
     Dates: start: 19950101
  4. EZETIMIBE [Concomitant]
     Indication: DYSLIPIDAEMIA
     Dosage: 10 MG, UNK
     Dates: start: 20070101
  5. ASPIRIN [Concomitant]
     Indication: PROPHYLAXIS
     Dosage: 100 MG, UNK
     Dates: start: 19860101
  6. Q10 [Concomitant]
     Indication: PROPHYLAXIS
     Dosage: 60 MG, UNK
     Dates: start: 20030101
  7. REPAGLINIDE [Concomitant]
     Indication: DIABETES MELLITUS
     Dosage: 2 MG, UNK
     Dates: start: 20110501, end: 20120305
  8. VICTOZA [Suspect]
     Indication: TYPE 2 DIABETES MELLITUS
     Dosage: 1.8 MG, QD
     Route: 058
     Dates: start: 20110222
  9. LANTUS [Concomitant]
     Indication: DIABETES MELLITUS
     Dosage: 10 IU, UNK
     Dates: start: 20100601, end: 20120305
  10. ACARBOSE [Concomitant]
     Indication: DIABETES MELLITUS
     Dosage: 100 MG, UNK
     Dates: start: 20110501
  11. METFORMIN HYDROCHLORIDE [Concomitant]
     Indication: DIABETES MELLITUS
     Dosage: 1700 MG, UNK
     Dates: start: 19930101
  12. SIMVASTATIN [Concomitant]
     Indication: DYSLIPIDAEMIA
     Dosage: 20 MG, UNK
     Dates: start: 20000101
  13. OMEPRAZOLE [Concomitant]
     Indication: GASTRITIS
     Dosage: 20 MG, UNK
     Dates: start: 20000101
  14. FELODIPINE [Concomitant]
     Indication: HYPERTENSION
     Dosage: 10 MG, UNK
     Dates: start: 20110209
  15. OMEGA 3                            /01334101/ [Concomitant]
     Indication: PROPHYLAXIS
     Dosage: UNK
     Dates: start: 20030101
  16. LATANOPROST [Concomitant]
     Indication: GLAUCOMA
     Dosage: 1 UNK, UNK
     Dates: start: 20000101
  17. MONOCORD [Concomitant]
     Indication: ANGINA PECTORIS
     Dosage: 50 MG, UNK
     Dates: start: 20000101

REACTIONS (1)
  - ANGINA UNSTABLE [None]
